FAERS Safety Report 8904499 (Version 1)
Quarter: 2012Q4

REPORT INFORMATION
  Report Type: 
  Country: US (occurrence: US)
  Receive Date: 20121112
  Receipt Date: 20121112
  Transmission Date: 20130627
  Serious: Yes (Hospitalization)
  Sender: FDA-Public Use
  Company Number: US-B.I. PHARMACEUTICALS,INC./RIDGEFIELD-2012-BP-27474BP

PATIENT
  Age: 64 None
  Sex: Female
  Weight: 44 kg

DRUGS (3)
  1. SPIRIVA [Suspect]
     Indication: CHRONIC OBSTRUCTIVE PULMONARY DISEASE
     Dosage: 18 mcg
     Route: 055
     Dates: start: 2009
  2. ZOLOFT [Concomitant]
     Indication: DEPRESSION
     Route: 048
     Dates: end: 201201
  3. EFFEXOR [Concomitant]
     Indication: DEPRESSION
     Dosage: 150 mg
     Route: 048
     Dates: start: 201201

REACTIONS (2)
  - Intestinal obstruction [Recovered/Resolved]
  - Abnormal loss of weight [Not Recovered/Not Resolved]
